FAERS Safety Report 8824564 (Version 1)
Quarter: 2012Q4

REPORT INFORMATION
  Report Type: 
  Country: PR (occurrence: PR)
  Receive Date: 20121004
  Receipt Date: 20121004
  Transmission Date: 20130627
  Serious: Yes (Other)
  Sender: FDA-Public Use
  Company Number: PR-JNJFOC-20120911656

PATIENT
  Age: 66 None
  Sex: Female
  Weight: 72.12 kg

DRUGS (6)
  1. XARELTO [Suspect]
     Indication: CEREBROVASCULAR ACCIDENT PROPHYLAXIS
     Route: 048
     Dates: start: 20120921
  2. XARELTO [Suspect]
     Indication: ATRIAL FIBRILLATION
     Route: 048
     Dates: start: 20120921
  3. PEPCID [Concomitant]
     Indication: GASTROOESOPHAGEAL REFLUX DISEASE
     Dates: start: 201208
  4. CARAFATE [Concomitant]
     Indication: ANTACID THERAPY
     Dates: start: 2012
  5. AMIODARONE [Concomitant]
     Indication: CARDIAC FIBRILLATION
     Route: 048
     Dates: start: 201209, end: 201209
  6. CARDIZEM [Concomitant]
     Route: 048

REACTIONS (7)
  - Heart rate increased [Not Recovered/Not Resolved]
  - Heart rate irregular [Recovered/Resolved]
  - Blood pressure increased [Not Recovered/Not Resolved]
  - Anxiety [Unknown]
  - Cardiomegaly [Not Recovered/Not Resolved]
  - Wrong technique in drug usage process [Not Recovered/Not Resolved]
  - Inappropriate schedule of drug administration [Not Recovered/Not Resolved]
